FAERS Safety Report 9744393 (Version 1)
Quarter: 2013Q4

REPORT INFORMATION
  Report Type: Spontaneous
  Country: US (occurrence: US)
  Receive Date: 20131210
  Receipt Date: 20131210
  Transmission Date: 20140711
  Serious: Yes (Other)
  Sender: FDA-Public Use
  Company Number: US-ACTAVIS-2013-22262

PATIENT
  Age: 58 Year
  Sex: Female

DRUGS (4)
  1. DOXORUBICIN (UNKNOWN) [Suspect]
     Indication: OVARIAN CANCER
     Dosage: 1240 MG/M2, TOTAL
     Route: 065
  2. CARBOPLATIN (WATSON LABORATORIES) [Suspect]
     Indication: OVARIAN CANCER
     Dosage: UNK
     Route: 065
  3. GEMCITABINE (ATLLC) [Suspect]
     Indication: OVARIAN CANCER
     Dosage: UNK
     Route: 065
  4. PACLITAXEL (ATLLC) (PACLITAXEL) UNK, UNKUNK [Suspect]
     Indication: OVARIAN CANCER
     Dosage: UNK
     Route: 065

REACTIONS (4)
  - Renal failure chronic [Unknown]
  - Haemolysis [Unknown]
  - Thrombocytopenia [Unknown]
  - Hypertension [Unknown]
